FAERS Safety Report 5215519-3 (Version None)
Quarter: 2007Q1

REPORT INFORMATION
  Report Type: 
  Country: None (occurrence: None)
  Receive Date: 20070123
  Receipt Date: 20070111
  Transmission Date: 20070707
  Serious: Yes (Other)
  Sender: FDA-Public Use
  Company Number: PHEH2007US00804

PATIENT
  Sex: Male

DRUGS (1)
  1. TEGRETOL [Suspect]

REACTIONS (3)
  - DRUG LEVEL INCREASED [None]
  - INTENTIONAL OVERDOSE [None]
  - SUICIDE ATTEMPT [None]
